FAERS Safety Report 20529419 (Version 2)
Quarter: 2022Q1

REPORT INFORMATION
  Report Type: Report from Study
  Country: US (occurrence: US)
  Receive Date: 20220228
  Receipt Date: 20220331
  Transmission Date: 20220423
  Serious: Yes (Other)
  Sender: FDA-Public Use
  Company Number: US-ABBVIE-22K-163-4236441-00

PATIENT
  Age: 58 Year
  Sex: Female

DRUGS (1)
  1. HUMIRA [Suspect]
     Active Substance: ADALIMUMAB
     Indication: Ankylosing spondylitis
     Route: 058

REACTIONS (17)
  - Cataract [Not Recovered/Not Resolved]
  - Macular degeneration [Not Recovered/Not Resolved]
  - COVID-19 [Recovered/Resolved]
  - Visual impairment [Unknown]
  - Respiratory disorder [Unknown]
  - Eye disorder [Unknown]
  - Feeling abnormal [Recovering/Resolving]
  - Muscle spasms [Unknown]
  - Nodule [Unknown]
  - Migraine [Not Recovered/Not Resolved]
  - Spinal disorder [Unknown]
  - Musculoskeletal disorder [Unknown]
  - Sneezing [Unknown]
  - Arthralgia [Recovering/Resolving]
  - Fibromyalgia [Unknown]
  - Stress [Unknown]
  - Pain [Recovering/Resolving]

NARRATIVE: CASE EVENT DATE: 20220101
